FAERS Safety Report 5255973-4 (Version None)
Quarter: 2007Q1

REPORT INFORMATION
  Report Type: 
  Country: None (occurrence: None)
  Receive Date: 20070302
  Receipt Date: 20070302
  Transmission Date: 20070707
  Serious: Yes (Hospitalization)
  Sender: FDA-Public Use
  Company Number: None

PATIENT
  Sex: Male

DRUGS (1)
  1. PROTEIN C CONCENTRATE [Suspect]
     Indication: SUPERIOR SAGITTAL SINUS THROMBOSIS
     Dosage: SEE IMAGE
     Route: 042
     Dates: start: 20061007, end: 20061027

REACTIONS (1)
  - GRAND MAL CONVULSION [None]
